FAERS Safety Report 21299155 (Version 4)
Quarter: 2022Q3

REPORT INFORMATION
  Report Type: Spontaneous
  Country: US (occurrence: US)
  Receive Date: 20220906
  Receipt Date: 20220912
  Transmission Date: 20221026
  Serious: Yes (Other)
  Sender: FDA-Public Use
  Company Number: US-PFIZER INC-PV202200052908

PATIENT
  Age: 14 Year
  Sex: Male

DRUGS (4)
  1. PROPOFOL [Suspect]
     Active Substance: PROPOFOL
     Indication: Sedative therapy
     Dosage: 50 MG
  2. PROPOFOL [Suspect]
     Active Substance: PROPOFOL
     Dosage: 6 MG/KG
  3. FENTANYL CITRATE [Concomitant]
     Active Substance: FENTANYL CITRATE
     Indication: Sedative therapy
     Dosage: 50 UG
  4. LIDOCAINE HYDROCHLORIDE [Concomitant]
     Active Substance: LIDOCAINE HYDROCHLORIDE
     Indication: Sedative therapy
     Dosage: 10 MG

REACTIONS (1)
  - Myoclonus [Recovered/Resolved]
